FAERS Safety Report 6933297-4 (Version None)
Quarter: 2010Q3

REPORT INFORMATION
  Report Type: 
  Country: None (occurrence: None)
  Receive Date: 20100820
  Receipt Date: 20100803
  Transmission Date: 20110219
  Serious: Yes (Hospitalization, Other)
  Sender: FDA-Public Use
  Company Number: US-BAYER-201015604NA

PATIENT
  Age: 20 Year
  Sex: Female
  Weight: 59 kg

DRUGS (6)
  1. YASMIN [Suspect]
     Indication: PRODUCT USED FOR UNKNOWN INDICATION
     Route: 048
     Dates: start: 20060301, end: 20080201
  2. NSAID'S [Concomitant]
     Dates: start: 20000101
  3. ALBUTEROL SULATE [Concomitant]
  4. ADVAIR DISKUS 100/50 [Concomitant]
     Dosage: 100/50
  5. COMBIVENT [Concomitant]
  6. ADVAIR DISKUS 100/50 [Concomitant]
     Dosage: 250/50 MCG

REACTIONS (5)
  - CHEST PAIN [None]
  - PLEURITIC PAIN [None]
  - PULMONARY EMBOLISM [None]
  - PULMONARY INFARCTION [None]
  - TACHYCARDIA [None]
